FAERS Safety Report 8837475 (Version 1)
Quarter: 2012Q4

REPORT INFORMATION
  Report Type: 
  Country: BE (occurrence: BE)
  Receive Date: 20121012
  Receipt Date: 20121012
  Transmission Date: 20130627
  Serious: Yes (Hospitalization)
  Sender: FDA-Public Use
  Company Number: BE-MYLANLABS-2012S1020399

PATIENT
  Age: 26 Year
  Sex: Male

DRUGS (9)
  1. CLOTIAPINE [Suspect]
     Indication: OVERDOSE
     Route: 065
  2. CLOTIAPINE [Suspect]
     Indication: OVERDOSE
     Route: 065
  3. QUETIAPINE [Suspect]
     Indication: OVERDOSE
     Route: 065
  4. QUETIAPINE [Suspect]
     Indication: OVERDOSE
     Route: 065
  5. TRAZODONE [Suspect]
     Route: 065
  6. LAMOTRIGINE [Concomitant]
     Route: 065
  7. LORAZEPAM [Concomitant]
     Route: 065
  8. ESCITALOPRAM [Concomitant]
     Route: 065
  9. ZUCLOPENTHIXOL [Concomitant]
     Route: 065

REACTIONS (3)
  - Overdose [Recovered/Resolved]
  - Gastrointestinal necrosis [Recovered/Resolved]
  - Necrotising colitis [Recovered/Resolved]
